FAERS Safety Report 12723550 (Version 1)
Quarter: 2016Q3

REPORT INFORMATION
  Report Type: Spontaneous
  Country: US (occurrence: US)
  Receive Date: 20160908
  Receipt Date: 20160908
  Transmission Date: 20161109
  Serious: No
  Sender: FDA-Public Use
  Company Number: US-TEVA-679901USA

PATIENT
  Sex: Female

DRUGS (15)
  1. CENESTIN [Concomitant]
     Active Substance: ESTROGENS, CONJUGATED SYNTHETIC A
  2. VERAPAMIL [Concomitant]
     Active Substance: VERAPAMIL HYDROCHLORIDE
  3. FISH OIL [Concomitant]
     Active Substance: FISH OIL
  4. FUROSEMIDE. [Concomitant]
     Active Substance: FUROSEMIDE
  5. ASPIRIN. [Concomitant]
     Active Substance: ASPIRIN
  6. AMANTADINE [Concomitant]
     Active Substance: AMANTADINE
  7. DULOXETINE. [Concomitant]
     Active Substance: DULOXETINE
  8. AMANTADINE [Concomitant]
     Active Substance: AMANTADINE
  9. VITAMIN B COMPLEX [Concomitant]
     Active Substance: CYANOCOBALAMIN\DEXPANTHENOL\NIACINAMIDE\PYRIDOXINE HYDROCHLORIDE\RIBOFLAVIN 5^-PHOSPHATE SODIUM\THIAMINE HYDROCHLORIDE\VITAMIN B COMPLEX
  10. DONEPEZIL. [Concomitant]
     Active Substance: DONEPEZIL
  11. CENTRUM [Concomitant]
     Active Substance: VITAMINS
  12. COPAXONE [Suspect]
     Active Substance: GLATIRAMER ACETATE
     Indication: MULTIPLE SCLEROSIS
     Dosage: 20 MILLIGRAM DAILY;
     Route: 058
     Dates: start: 20110712
  13. PREDNISONE. [Concomitant]
     Active Substance: PREDNISONE
  14. ESTRADIOL. [Concomitant]
     Active Substance: ESTRADIOL
  15. TRAMADOL. [Concomitant]
     Active Substance: TRAMADOL

REACTIONS (1)
  - Back disorder [Recovering/Resolving]

NARRATIVE: CASE EVENT DATE: 2016
